FAERS Safety Report 9860655 (Version 1)
Quarter: 2014Q1

REPORT INFORMATION
  Report Type: Spontaneous
  Country: US (occurrence: US)
  Receive Date: 20140202
  Receipt Date: 20140202
  Transmission Date: 20141002
  Serious: No
  Sender: FDA-Public Use
  Company Number: US-ALLERGAN-1300050US

PATIENT
  Age: 15 Year
  Sex: Female

DRUGS (2)
  1. BOTOX [Suspect]
     Indication: HYPERHIDROSIS
     Dosage: 100 UNITS, SINGLE
     Route: 023
     Dates: start: 20121218, end: 20121218
  2. TOPICAL CREAM FOR ACNE [Concomitant]
     Indication: ACNE
     Dosage: UNK
     Route: 061

REACTIONS (2)
  - Muscle tightness [Recovered/Resolved]
  - Muscular weakness [Recovered/Resolved]
